FAERS Safety Report 20674141 (Version 1)
Quarter: 2022Q2

REPORT INFORMATION
  Report Type: Spontaneous
  Country: CA (occurrence: CA)
  Receive Date: 20220405
  Receipt Date: 20220405
  Transmission Date: 20220721
  Serious: Yes (Death)
  Sender: FDA-Public Use
  Company Number: CA-TEVA-2022-CA-2024403

PATIENT
  Age: 61 Year
  Sex: Male

DRUGS (4)
  1. TRANDOLAPRIL [Suspect]
     Active Substance: TRANDOLAPRIL
     Dosage: 4 MILLIGRAM DAILY;
     Route: 048
  2. ALLOPURINOL [Concomitant]
     Active Substance: ALLOPURINOL
  3. BYSTOLIC [Concomitant]
     Active Substance: NEBIVOLOL HYDROCHLORIDE
  4. HYDROCHLOROTHIAZIDE [Concomitant]
     Active Substance: HYDROCHLOROTHIAZIDE

REACTIONS (6)
  - Angioedema [Fatal]
  - Endotracheal intubation [Fatal]
  - Hypoxic-ischaemic encephalopathy [Fatal]
  - Respiratory arrest [Fatal]
  - Upper airway obstruction [Fatal]
  - Contraindicated product prescribed [Fatal]
